FAERS Safety Report 9688118 (Version 1)
Quarter: 2013Q4

REPORT INFORMATION
  Report Type: Spontaneous
  Country: DE (occurrence: None)
  Receive Date: 20131112
  Receipt Date: 20131112
  Transmission Date: 20140711
  Serious: Yes (Death)
  Sender: FDA-Public Use
  Company Number: FK201304850

PATIENT
  Age: 49 Year
  Sex: Male

DRUGS (3)
  1. HEPARIN [Suspect]
     Indication: ANTICOAGULANT THERAPY
     Dosage: CONTROLLED BY PTT AND CLOTTING TIME,
  2. ASPIRIN [Concomitant]
  3. EPINEPHRINE (EPINEPHRINE) [Concomitant]

REACTIONS (6)
  - Atrial thrombosis [None]
  - Cardiac ventricular thrombosis [None]
  - Pulmonary oedema [None]
  - Pulmonary haemorrhage [None]
  - Heparin-induced thrombocytopenia [None]
  - Pulmonary venous thrombosis [None]
